FAERS Safety Report 22379411 (Version 1)
Quarter: 2023Q2

REPORT INFORMATION
  Report Type: Spontaneous
  Country: US (occurrence: US)
  Receive Date: 20230529
  Receipt Date: 20230529
  Transmission Date: 20230722
  Serious: No
  Sender: FDA-Public Use
  Company Number: US-BRISTOL-MYERS SQUIBB COMPANY-2023-075205

PATIENT
  Age: 69 Year
  Sex: Female
  Weight: 96.62 kg

DRUGS (1)
  1. POMALYST [Suspect]
     Active Substance: POMALIDOMIDE
     Indication: Plasma cell myeloma in remission
     Dosage: FREQ-DAILY FOR 21DAYS
     Route: 048
     Dates: start: 20230501

REACTIONS (6)
  - Diarrhoea [Unknown]
  - Fatigue [Unknown]
  - Disturbance in attention [Unknown]
  - Erythema [Unknown]
  - Nervousness [Unknown]
  - Dyspnoea [Unknown]
